FAERS Safety Report 18022952 (Version 1)
Quarter: 2020Q3

REPORT INFORMATION
  Report Type: Spontaneous
  Country: GB (occurrence: GB)
  Receive Date: 20200714
  Receipt Date: 20200714
  Transmission Date: 20201103
  Serious: Yes (Other)
  Sender: FDA-Public Use
  Company Number: NVSC2020GB189998

PATIENT
  Age: 19 Year
  Sex: Female

DRUGS (8)
  1. PARACETAMOL [Suspect]
     Active Substance: ACETAMINOPHEN
     Indication: PRODUCT USED FOR UNKNOWN INDICATION
     Dosage: UNKNOWN, QD
     Route: 048
     Dates: start: 20100413, end: 20100413
  2. DO?DO [AMINOPHENAZONE\CAFFEINE\EPHEDRINE HYDROCHLORIDE\GRINDELIA ROBUSTA\THEOBROMINE CALCIUM SALICYLATE] [Suspect]
     Active Substance: AMINOPHENAZONE\CAFFEINE\EPHEDRINE HYDROCHLORIDE\HERBALS\THEOBROMINE CALCIUM SALICYLATE
     Indication: PRODUCT USED FOR UNKNOWN INDICATION
     Dosage: UNK, QD
     Route: 065
     Dates: start: 20100413, end: 20100413
  3. ALCOHOL. [Suspect]
     Active Substance: ALCOHOL
     Indication: PRODUCT USED FOR UNKNOWN INDICATION
     Dosage: UNKNOWN, QD
     Route: 065
     Dates: start: 20100413, end: 20100413
  4. PHENYLEPHRINE [Suspect]
     Active Substance: PHENYLEPHRINE HYDROCHLORIDE
     Indication: PRODUCT USED FOR UNKNOWN INDICATION
     Dosage: UNKNOWN, QD
     Route: 048
     Dates: start: 20100413, end: 20100413
  5. NYTOL [Suspect]
     Active Substance: DIPHENHYDRAMINE HYDROCHLORIDE
     Indication: PRODUCT USED FOR UNKNOWN INDICATION
     Dosage: UUNKNOWN, QD
     Route: 048
     Dates: start: 20100413, end: 20100413
  6. THEOPHYLLINE [Suspect]
     Active Substance: THEOPHYLLINE ANHYDROUS
     Indication: PRODUCT USED FOR UNKNOWN INDICATION
     Dosage: UNKNOWN, QD
     Route: 048
     Dates: start: 20100413, end: 20100413
  7. ZOPICLONE [Suspect]
     Active Substance: ZOPICLONE
     Indication: PRODUCT USED FOR UNKNOWN INDICATION
     Dosage: 71.3 MG, QD (71.25 MG, 1X/TOT)
     Route: 048
     Dates: start: 20100413, end: 20100413
  8. AMOXICILLIN. [Suspect]
     Active Substance: AMOXICILLIN
     Indication: PRODUCT USED FOR UNKNOWN INDICATION
     Dosage: UNKNOWN, QD
     Route: 048
     Dates: start: 20100413, end: 20100413

REACTIONS (2)
  - Intentional overdose [Unknown]
  - Rhabdomyolysis [Recovering/Resolving]

NARRATIVE: CASE EVENT DATE: 20100413
